FAERS Safety Report 20165481 (Version 1)
Quarter: 2021Q4

REPORT INFORMATION
  Report Type: Spontaneous
  Country: US (occurrence: US)
  Receive Date: 20211209
  Receipt Date: 20211209
  Transmission Date: 20220303
  Serious: Yes (Other)
  Sender: FDA-Public Use
  Company Number: US-BAYER-2021A264170

PATIENT
  Age: 35 Year
  Sex: Male

DRUGS (1)
  1. CALCIUM CARBONATE [Suspect]
     Active Substance: CALCIUM CARBONATE
     Indication: Abdominal pain
     Dosage: UNK

REACTIONS (4)
  - Pancreatitis acute [None]
  - Milk-alkali syndrome [None]
  - Acute kidney injury [None]
  - Product administration error [None]
